FAERS Safety Report 6788722-9 (Version None)
Quarter: 2010Q2

REPORT INFORMATION
  Report Type: 
  Country: None (occurrence: None)
  Receive Date: 20100623
  Receipt Date: 20080512
  Transmission Date: 20101027
  Serious: No
  Sender: FDA-Public Use
  Company Number: US-PFIZER INC-2008040730

PATIENT

DRUGS (1)
  1. GEODON [Suspect]

REACTIONS (6)
  - CRYING [None]
  - FEELING ABNORMAL [None]
  - MOVEMENT DISORDER [None]
  - NERVOUSNESS [None]
  - PALPITATIONS [None]
  - UNEVALUABLE EVENT [None]
